FAERS Safety Report 18205675 (Version 1)
Quarter: 2020Q3

REPORT INFORMATION
  Report Type: Spontaneous
  Country: US (occurrence: US)
  Receive Date: 20200828
  Receipt Date: 20200828
  Transmission Date: 20201103
  Serious: No
  Sender: FDA-Public Use
  Company Number: US-BAUSCH-BL-2020-024329

PATIENT
  Age: 43 Year
  Sex: Female
  Weight: 102.6 kg

DRUGS (2)
  1. XERESE [Suspect]
     Active Substance: ACYCLOVIR\HYDROCORTISONE
     Dosage: STRENGTH: ACYCLOVIR 5%/ HYDROCORTISONE 1%?SECOND TUBE
     Route: 061
     Dates: start: 202008
  2. XERESE [Suspect]
     Active Substance: ACYCLOVIR\HYDROCORTISONE
     Indication: ORAL HERPES
     Dosage: STRENGTH: ACYCLOVIR 5%/ HYDROCORTISONE 1%?STARTED SIX TO NINE MONTHS AGO?UP TO FIVE TIMES PER DAY
     Route: 061
     Dates: end: 202008

REACTIONS (2)
  - Drug ineffective [Unknown]
  - Product physical consistency issue [Unknown]
